FAERS Safety Report 12721848 (Version 1)
Quarter: 2016Q3

REPORT INFORMATION
  Report Type: Spontaneous
  Country: DE (occurrence: DE)
  Receive Date: 20160907
  Receipt Date: 20160907
  Transmission Date: 20161109
  Serious: Yes (Hospitalization)
  Sender: FDA-Public Use
  Company Number: DE-TEVA-672563GER

PATIENT
  Age: 5 Year
  Sex: Male
  Weight: 24 kg

DRUGS (1)
  1. DIAZEPAM-RATIOPHARM 10 MG / ML TROPFEN ZUM EINNEHMEN [Suspect]
     Active Substance: DIAZEPAM
     Dosage: 6 ML DAILY;
     Route: 048
     Dates: start: 20160601, end: 20160601

REACTIONS (4)
  - Gait disturbance [Recovered/Resolved]
  - Accidental overdose [Unknown]
  - Speech disorder [Recovered/Resolved]
  - Wrong drug administered [Unknown]

NARRATIVE: CASE EVENT DATE: 20160601
